FAERS Safety Report 24611220 (Version 1)
Quarter: 2024Q4

REPORT INFORMATION
  Report Type: Report from Study
  Country: ZA (occurrence: ZA)
  Receive Date: 20241113
  Receipt Date: 20241113
  Transmission Date: 20250114
  Serious: Yes (Death, Hospitalization, Other)
  Sender: ALEXION PHARMACEUTICALS
  Company Number: ZA-AstraZeneca-CH-00735501A

PATIENT
  Age: 79 Year

DRUGS (20)
  1. DAPAGLIFLOZIN [Suspect]
     Active Substance: DAPAGLIFLOZIN
     Route: 065
  2. DAPAGLIFLOZIN [Suspect]
     Active Substance: DAPAGLIFLOZIN
  3. DAPAGLIFLOZIN [Suspect]
     Active Substance: DAPAGLIFLOZIN
     Route: 065
  4. DAPAGLIFLOZIN [Suspect]
     Active Substance: DAPAGLIFLOZIN
  5. ACURATE [Concomitant]
  6. ACURATE [Concomitant]
     Route: 065
  7. LANSOPRAZOLE [Concomitant]
     Active Substance: LANSOPRAZOLE
  8. LANSOPRAZOLE [Concomitant]
     Active Substance: LANSOPRAZOLE
     Route: 065
  9. AMITRIPTYLINE HYDROCHLORIDE [Concomitant]
     Active Substance: AMITRIPTYLINE HYDROCHLORIDE
  10. AMITRIPTYLINE HYDROCHLORIDE [Concomitant]
     Active Substance: AMITRIPTYLINE HYDROCHLORIDE
     Route: 065
  11. Spiractin [Concomitant]
  12. Spiractin [Concomitant]
     Route: 065
  13. SIMVASTATIN [Concomitant]
     Active Substance: SIMVASTATIN
  14. SIMVASTATIN [Concomitant]
     Active Substance: SIMVASTATIN
     Route: 065
  15. LISINOPRIL [Concomitant]
     Active Substance: LISINOPRIL
  16. LISINOPRIL [Concomitant]
     Active Substance: LISINOPRIL
     Route: 065
  17. BISOPROLOL FUMARATE [Concomitant]
     Active Substance: BISOPROLOL FUMARATE
  18. BISOPROLOL FUMARATE [Concomitant]
     Active Substance: BISOPROLOL FUMARATE
     Route: 065
  19. GLICLAZIDE [Concomitant]
     Active Substance: GLICLAZIDE
  20. GLICLAZIDE [Concomitant]
     Active Substance: GLICLAZIDE
     Route: 065

REACTIONS (5)
  - Death [Fatal]
  - Cardiac failure [Unknown]
  - Cardiac disorder [Unknown]
  - Renal failure [Unknown]
  - Pneumothorax [Unknown]
